FAERS Safety Report 16767607 (Version 1)
Quarter: 2019Q3

REPORT INFORMATION
  Report Type: Spontaneous
  Country: US (occurrence: US)
  Receive Date: 20190903
  Receipt Date: 20190903
  Transmission Date: 20191005
  Serious: No
  Sender: FDA-Public Use
  Company Number: None

PATIENT
  Age: 67 Year
  Sex: Male
  Weight: 62.6 kg

DRUGS (5)
  1. CEFAZOLIN 2 GM IN 100 ML NS [Concomitant]
     Dates: start: 20190826, end: 20190826
  2. GLYCOPYRROLATE 0.3 MG [Concomitant]
     Dates: start: 20190826, end: 20190826
  3. LIDOCAINE 2% 60 MG [Concomitant]
     Dates: start: 20190826, end: 20190826
  4. HEPARIN SODIUM INJECTION, USP [Suspect]
     Active Substance: HEPARIN SODIUM
     Indication: THROMBECTOMY
     Dosage: ?          OTHER FREQUENCY:X 1;?
     Route: 040
     Dates: start: 20190826, end: 20190826
  5. PROPOFOL 150 MG [Concomitant]
     Dates: start: 20190826, end: 20190826

REACTIONS (3)
  - Blood pressure decreased [None]
  - Product complaint [None]
  - Tachycardia [None]

NARRATIVE: CASE EVENT DATE: 20190826
